FAERS Safety Report 10106817 (Version 2)
Quarter: 2014Q3

REPORT INFORMATION
  Report Type: Other
  Country: US (occurrence: US)
  Receive Date: 20140424
  Receipt Date: 20140825
  Transmission Date: 20150326
  Serious: Yes (Hospitalization, Other)
  Sender: FDA-Public Use
  Company Number: US-GSKPPD-2014GSK005062

PATIENT
  Age: 65 Year
  Sex: Male

DRUGS (11)
  1. LIPITOR [Concomitant]
     Active Substance: ATORVASTATIN CALCIUM
     Route: 048
  2. ENALAPRIL [Concomitant]
     Active Substance: ENALAPRIL
  3. LASIX [Concomitant]
     Active Substance: FUROSEMIDE
     Route: 048
  4. HYDRALAZINE [Concomitant]
     Active Substance: HYDRALAZINE HYDROCHLORIDE
  5. ASA [Concomitant]
     Active Substance: ASPIRIN
     Route: 048
  6. AVANDIA [Suspect]
     Active Substance: ROSIGLITAZONE MALEATE
     Indication: DIABETES MELLITUS
     Dosage: AVANDIA WAS NOT LISTED AMONG THE PATIENT^S DISCHARGE RECORDS.
     Route: 048
  7. COREG [Concomitant]
     Active Substance: CARVEDILOL
  8. NIFEDIPINE XL [Concomitant]
     Active Substance: NIFEDIPINE
     Route: 048
  9. DIOGOXIN [Concomitant]
  10. COREG [Concomitant]
     Active Substance: CARVEDILOL
  11. ISORDIL [Concomitant]
     Active Substance: ISOSORBIDE DINITRATE

REACTIONS (2)
  - Supraventricular tachycardia [None]
  - Myocardial infarction [None]

NARRATIVE: CASE EVENT DATE: 20061102
